FAERS Safety Report 5633713-4 (Version None)
Quarter: 2008Q1

REPORT INFORMATION
  Report Type: 
  Country: None (occurrence: None)
  Receive Date: 20080221
  Receipt Date: 20080211
  Transmission Date: 20080703
  Serious: Yes (Hospitalization)
  Sender: FDA-Public Use
  Company Number: US-ABBOTT-08P-163-0437879-00

PATIENT
  Sex: Male
  Weight: 65.83 kg

DRUGS (2)
  1. HUMIRA [Suspect]
     Indication: CROHN'S DISEASE
     Route: 058
     Dates: start: 20071124
  2. AZATHIOPRINE [Concomitant]
     Indication: CROHN'S DISEASE
     Route: 048

REACTIONS (12)
  - BRONCHITIS [None]
  - CHEST PAIN [None]
  - FALL [None]
  - PAINFUL RESPIRATION [None]
  - PRURITUS [None]
  - RIB FRACTURE [None]
  - SCAB [None]
  - SENSATION OF PRESSURE [None]
  - SINUS OPERATION [None]
  - SKIN ULCER [None]
  - SKIN ULCER HAEMORRHAGE [None]
  - STERNAL FRACTURE [None]
